FAERS Safety Report 9830583 (Version 1)
Quarter: 2014Q1

REPORT INFORMATION
  Report Type: Spontaneous
  Country: JP (occurrence: JP)
  Receive Date: 20140120
  Receipt Date: 20140120
  Transmission Date: 20141002
  Serious: Yes (Other)
  Sender: FDA-Public Use
  Company Number: JP-009507513-1401JPN006929

PATIENT
  Age: 63 Year
  Sex: Female

DRUGS (6)
  1. JANUVIA TABLETS 50MG [Suspect]
     Dosage: DAILY DOSE UNKNOWN
     Route: 048
     Dates: start: 201301, end: 201301
  2. THERAPY UNSPECIFIED [Suspect]
     Dosage: UNKNOWN
     Route: 065
  3. THERAPY UNSPECIFIED [Suspect]
     Dosage: UNKNOWN
     Route: 065
  4. THERAPY UNSPECIFIED [Suspect]
     Dosage: UNKNOWN
     Route: 065
  5. THERAPY UNSPECIFIED [Suspect]
     Dosage: UKNOWN
     Route: 065
  6. THERAPY UNSPECIFIED [Suspect]
     Dosage: UNKNOWN
     Route: 065

REACTIONS (2)
  - Drug-induced liver injury [Unknown]
  - Renal failure acute [Unknown]
